FAERS Safety Report 9071501 (Version 1)
Quarter: 2013Q1

REPORT INFORMATION
  Report Type: Report from Study
  Country: US (occurrence: US)
  Receive Date: 20130129
  Receipt Date: 20130129
  Transmission Date: 20140127
  Serious: No
  Sender: FDA-Public Use
  Company Number: US-ABBOTT-12P-163-0926283-00

PATIENT
  Age: 39 Year
  Sex: Female

DRUGS (5)
  1. HUMIRA 40 MG/0.8 ML PEN [Suspect]
     Indication: PSORIATIC ARTHROPATHY
     Dates: start: 20120403
  2. ADVAIR [Concomitant]
     Indication: ASTHMA
     Dosage: 2 PUFFS DAILY
  3. ZYRTEC [Concomitant]
     Indication: HYPERSENSITIVITY
     Dosage: 1 TAB DAILY
  4. VITAMIN D [Concomitant]
     Indication: PRODUCT USED FOR UNKNOWN INDICATION
     Dosage: WEEKLY
     Route: 048
  5. PRILOSEC OVER THE COUNTER [Concomitant]
     Indication: GASTROOESOPHAGEAL REFLUX DISEASE
     Dosage: ONCE DAILY

REACTIONS (2)
  - Hypersensitivity [Not Recovered/Not Resolved]
  - Injection site erythema [Unknown]
